FAERS Safety Report 5519872-2 (Version None)
Quarter: 2007Q4

REPORT INFORMATION
  Report Type: 
  Country: None (occurrence: None)
  Receive Date: 20071116
  Receipt Date: 20070927
  Transmission Date: 20080405
  Serious: Yes (Other)
  Sender: FDA-Public Use
  Company Number: A0685382A

PATIENT
  Age: 61 Year
  Sex: Female

DRUGS (2)
  1. COREG CR [Suspect]
     Dosage: 40MG PER DAY
     Route: 048
     Dates: start: 20070508, end: 20070914
  2. COREG [Concomitant]
     Dosage: 12.5U TWICE PER DAY
     Route: 048

REACTIONS (1)
  - BRADYCARDIA [None]
